FAERS Safety Report 9899241 (Version 2)
Quarter: 2014Q1

REPORT INFORMATION
  Report Type: Spontaneous
  Country: US (occurrence: US)
  Receive Date: 20140214
  Receipt Date: 20140214
  Transmission Date: 20141002
  Serious: No
  Sender: FDA-Public Use
  Company Number: US-GILEAD-2011-0046220

PATIENT
  Age: 46 Year
  Sex: Male

DRUGS (2)
  1. LETAIRIS [Suspect]
     Indication: DRUG ABUSE
     Dosage: 5 MG, UNK
     Route: 048
     Dates: start: 201110, end: 20111025
  2. LETAIRIS [Suspect]
     Indication: PULMONARY HYPERTENSION

REACTIONS (1)
  - Cough [Unknown]
